FAERS Safety Report 23064858 (Version 3)
Quarter: 2023Q4

REPORT INFORMATION
  Report Type: Spontaneous
  Country: JP (occurrence: None)
  Receive Date: 20231013
  Receipt Date: 20231124
  Transmission Date: 20240109
  Serious: Yes (Hospitalization, Other)
  Sender: FDA-Public Use
  Company Number: 2023A188282

PATIENT
  Age: 78 Year
  Sex: Male
  Weight: 50 kg

DRUGS (11)
  1. DAPAGLIFLOZIN [Suspect]
     Active Substance: DAPAGLIFLOZIN
     Indication: Cardiac failure chronic
     Route: 048
     Dates: start: 20221212, end: 20230425
  2. LIPITOR [Concomitant]
     Active Substance: ATORVASTATIN CALCIUM
     Route: 048
  3. PRASUGREL HYDROCHLORIDE [Concomitant]
     Active Substance: PRASUGREL HYDROCHLORIDE
     Route: 048
  4. FEBUXOSTAT [Concomitant]
     Active Substance: FEBUXOSTAT
     Route: 048
  5. LANSOPRAZOLE [Concomitant]
     Active Substance: LANSOPRAZOLE
     Route: 048
  6. BISOPROLOL FUMARATE [Concomitant]
     Active Substance: BISOPROLOL FUMARATE
     Route: 048
  7. AMBROXOL HYDROCHLORIDE OD [Concomitant]
     Route: 048
  8. ICOSAPENT ETHYL [Concomitant]
     Active Substance: ICOSAPENT ETHYL
     Route: 048
  9. FUROSEMIDE [Concomitant]
     Active Substance: FUROSEMIDE
     Route: 048
  10. SPIRONOLACTONE [Concomitant]
     Active Substance: SPIRONOLACTONE
     Route: 048
  11. ENTRESTO [Concomitant]
     Active Substance: SACUBITRIL\VALSARTAN
     Route: 048
     Dates: start: 20230329

REACTIONS (6)
  - Urinary tract infection [Recovering/Resolving]
  - Cardiac failure chronic [Recovering/Resolving]
  - Pyelonephritis acute [Recovering/Resolving]
  - Urinary retention [Recovering/Resolving]
  - Neurogenic bladder [Recovering/Resolving]
  - Pyelonephritis [Recovering/Resolving]

NARRATIVE: CASE EVENT DATE: 20230424
